FAERS Safety Report 10168831 (Version 1)
Quarter: 2014Q2

REPORT INFORMATION
  Report Type: Spontaneous
  Country: FR (occurrence: FR)
  Receive Date: 20140513
  Receipt Date: 20140513
  Transmission Date: 20141212
  Serious: Yes (Hospitalization)
  Sender: FDA-Public Use
  Company Number: FR-JNJFOC-20140501040

PATIENT
  Age: 52 Year
  Sex: Female

DRUGS (9)
  1. EPITOMAX [Suspect]
     Indication: MIGRAINE PROPHYLAXIS
     Dosage: TREATED SINCE 1.5 YEARS
     Route: 048
     Dates: end: 20131222
  2. IBUPROFENE [Suspect]
     Indication: FIBROMYALGIA
     Dosage: 400MG TWICE DAILY, SINCE MORE THAN 1 YEAR
     Route: 048
     Dates: end: 20131220
  3. DOLIPRANE [Suspect]
     Indication: FIBROMYALGIA
     Dosage: SINCE MORE THAN 1 YEAR
     Route: 048
     Dates: end: 20131221
  4. LUTENYL [Suspect]
     Indication: HORMONE REPLACEMENT THERAPY
     Dosage: OAD: TREATED FOR OVER 1.5 YEARS
     Route: 048
     Dates: end: 20131221
  5. MODURETIC [Suspect]
     Indication: MIGRAINE
     Dosage: 0.5 TABLET PER DAY SINCE 3 YEARS
     Route: 048
     Dates: end: 20131222
  6. AMOXICILLINE [Concomitant]
     Indication: PRODUCT USED FOR UNKNOWN INDICATION
     Route: 065
     Dates: start: 20131220, end: 20131221
  7. RHINADVIL [Concomitant]
     Indication: BRONCHITIS
     Route: 065
     Dates: start: 20131020
  8. LEVOTHYROX [Concomitant]
     Indication: HYPOTHYROIDISM
     Dosage: START DATE UNSPECIFIED
     Route: 065
  9. OESTROGEN GEL [Concomitant]
     Indication: PRODUCT USED FOR UNKNOWN INDICATION
     Dosage: STOPPED 6 MONTHS AGO
     Route: 065

REACTIONS (9)
  - Cheilitis [Recovered/Resolved]
  - Vulvar erosion [Recovered/Resolved]
  - Keratitis [Recovering/Resolving]
  - Hepatitis cholestatic [Recovering/Resolving]
  - Rash maculo-papular [Recovered/Resolved]
  - Dermatitis bullous [Unknown]
  - Oedema peripheral [Recovering/Resolving]
  - Oropharyngeal pain [Recovering/Resolving]
  - Rhinitis [Recovering/Resolving]
